FAERS Safety Report 23265566 (Version 1)
Quarter: 2023Q4

REPORT INFORMATION
  Report Type: Spontaneous
  Country: RU (occurrence: RU)
  Receive Date: 20231206
  Receipt Date: 20231206
  Transmission Date: 20240110
  Serious: Yes (Other)
  Sender: FDA-Public Use
  Company Number: RU-009507513-2311RUS011465

PATIENT
  Age: 40 Year
  Sex: Female
  Weight: 82 kg

DRUGS (1)
  1. ISENTRESS [Suspect]
     Active Substance: RALTEGRAVIR POTASSIUM
     Indication: HIV infection
     Dosage: 1 DOSE 1 TABLET (2 TIMES PER DAY)
     Dates: start: 20201221, end: 20230403

REACTIONS (1)
  - Lipoatrophy [Recovering/Resolving]

NARRATIVE: CASE EVENT DATE: 20221202
